FAERS Safety Report 8942019 (Version 2)
Quarter: 2012Q4

REPORT INFORMATION
  Report Type: 
  Country: US (occurrence: US)
  Receive Date: 20121130
  Receipt Date: 20121206
  Transmission Date: 20130627
  Serious: No
  Sender: FDA-Public Use
  Company Number: US-009507513-1211USA012345

PATIENT
  Age: 78 Year
  Sex: Male
  Weight: 96.6 kg

DRUGS (3)
  1. CLARITIN REDITABS 12HR [Suspect]
     Indication: RHINORRHOEA
     Dosage: 5 mg, bid
     Route: 048
     Dates: start: 20120922, end: 20121028
  2. CLARITIN REDITABS 12HR [Suspect]
     Indication: MEDICAL OBSERVATION
  3. REVLIMID [Concomitant]
     Indication: NEOPLASM MALIGNANT
     Dosage: UNK, Unknown

REACTIONS (2)
  - Rhinorrhoea [Not Recovered/Not Resolved]
  - Drug effect decreased [Unknown]
